FAERS Safety Report 6377813-2 (Version None)
Quarter: 2009Q3

REPORT INFORMATION
  Report Type: 
  Country: None (occurrence: None)
  Receive Date: 20090925
  Receipt Date: 20090916
  Transmission Date: 20100115
  Serious: Yes (Other)
  Sender: FDA-Public Use
  Company Number: CA-GENENTECH-289976

PATIENT
  Age: 51 Year
  Sex: Male

DRUGS (5)
  1. AVASTIN [Suspect]
     Indication: COLORECTAL CANCER
     Dosage: 5 MG/KG, Q2W
     Route: 042
     Dates: start: 20090801, end: 20090801
  2. FLUOROURACIL [Suspect]
     Indication: COLORECTAL CANCER
     Dosage: 1 UNK, Q2W
     Route: 042
     Dates: start: 20090801
  3. FOLINIC ACID [Suspect]
     Indication: COLORECTAL CANCER
     Dosage: 1 UNK, Q2W
     Route: 042
     Dates: start: 20090801
  4. IRINOTECAN HCL [Suspect]
     Indication: COLORECTAL CANCER
     Dosage: 1 UNK, Q2W
     Route: 042
     Dates: start: 20090801
  5. CORDARONE [Concomitant]
     Indication: ATRIAL FIBRILLATION
     Dosage: UNK
     Dates: start: 20090101

REACTIONS (2)
  - ATRIAL FIBRILLATION [None]
  - SUPRAVENTRICULAR TACHYCARDIA [None]
